FAERS Safety Report 9216730 (Version 2)
Quarter: 2013Q2

REPORT INFORMATION
  Report Type: Spontaneous
  Country: US (occurrence: US)
  Receive Date: 20130405
  Receipt Date: 20130415
  Transmission Date: 20140414
  Serious: Yes (Other)
  Sender: FDA-Public Use
  Company Number: US-RB-052346-13

PATIENT
  Age: 4 Year
  Sex: Female

DRUGS (2)
  1. MUCINEX CHILDREN^S COUGH CHERRY [Suspect]
     Indication: COUGH
     Route: 048
     Dates: start: 20130328
  2. MULTIVITAMIN [Concomitant]
     Indication: PRODUCT USED FOR UNKNOWN INDICATION

REACTIONS (5)
  - Convulsion [Recovered/Resolved]
  - Fall [Recovered/Resolved]
  - Unevaluable event [Recovered/Resolved]
  - Vomiting [Recovered/Resolved]
  - Pyrexia [Recovered/Resolved]
